FAERS Safety Report 13090787 (Version 1)
Quarter: 2017Q1

REPORT INFORMATION
  Report Type: Report from Study
  Country: US (occurrence: US)
  Receive Date: 20170106
  Receipt Date: 20170106
  Transmission Date: 20170428
  Serious: No
  Sender: FDA-Public Use
  Company Number: US-009507513-1612USA014821

PATIENT

DRUGS (2)
  1. EMEND [Suspect]
     Active Substance: APREPITANT
     Route: 048
  2. KEYTRUDA [Suspect]
     Active Substance: PEMBROLIZUMAB

REACTIONS (1)
  - Hypersensitivity [Unknown]
